FAERS Safety Report 4478478-7 (Version None)
Quarter: 2004Q4

REPORT INFORMATION
  Report Type: 
  Country: None (occurrence: None)
  Receive Date: 20041014
  Receipt Date: 20041004
  Transmission Date: 20050328
  Serious: Yes (Life-Threatening, Other)
  Sender: FDA-Public Use
  Company Number: 230118M04USA

PATIENT
  Age: 45 Year
  Sex: Female

DRUGS (5)
  1. REBIF [Suspect]
     Indication: MULTIPLE SCLEROSIS
     Dosage: 44 MC, 3 IN 1 WEEKS, SUBCUTANEOUS
     Route: 058
     Dates: start: 20031226, end: 20040503
  2. MYCOPHENOLATE MOFETIL [Concomitant]
  3. CALCIUM [Concomitant]
  4. ERGOCALCIFEROL [Concomitant]
  5. MULTI-VITAMINS [Concomitant]

REACTIONS (2)
  - HEPATIC FAILURE [None]
  - HEPATIC FIBROSIS [None]
